FAERS Safety Report 18236201 (Version 1)
Quarter: 2020Q3

REPORT INFORMATION
  Report Type: Report from Study
  Country: DE (occurrence: DE)
  Receive Date: 20200906
  Receipt Date: 20200906
  Transmission Date: 20201103
  Serious: Yes (Other)
  Sender: FDA-Public Use
  Company Number: DE-ROCHE-2667450

PATIENT
  Age: 71 Year
  Sex: Female
  Weight: 90 kg

DRUGS (5)
  1. PERTUZUMAB. [Suspect]
     Active Substance: PERTUZUMAB
     Dosage: MAINTENANCE DOSE RECEIVED ON AN UNKNOWN DATE.?LAST DOSE PRIOR TO THE EVENT ONSET: 26/FEB/2014 (840 M
     Route: 042
  2. TRASTUZUMAB. [Suspect]
     Active Substance: TRASTUZUMAB
     Indication: HER2 POSITIVE BREAST CANCER
     Dosage: LOADING DOSE
     Route: 041
     Dates: start: 20130306
  3. PERTUZUMAB. [Suspect]
     Active Substance: PERTUZUMAB
     Indication: HER2 POSITIVE BREAST CANCER
     Dosage: LOADING DOSE
     Route: 042
     Dates: start: 20130306
  4. TAMOXIFEN [Concomitant]
     Active Substance: TAMOXIFEN
     Indication: CERVIX CARCINOMA
     Dates: start: 20190305
  5. TRASTUZUMAB. [Suspect]
     Active Substance: TRASTUZUMAB
     Dosage: MAINTENANCE DOSE RECEIVED ON AN UNKNOWN DATE.?LAST DOSE PRIOR TO THE EVENT ONSET: 26/FEB/2014 (688 M
     Route: 041

REACTIONS (1)
  - Cervix carcinoma [Not Recovered/Not Resolved]

NARRATIVE: CASE EVENT DATE: 20200304
